FAERS Safety Report 8598762-5 (Version None)
Quarter: 2012Q3

REPORT INFORMATION
  Report Type: 
  Country: None (occurrence: None)
  Receive Date: 20120816
  Receipt Date: 20120806
  Transmission Date: 20120928
  Serious: Yes (Other)
  Sender: FDA-Public Use
  Company Number: US-ELI_LILLY_AND_COMPANY-US201208002183

PATIENT
  Sex: Female

DRUGS (3)
  1. FORTEO [Suspect]
     Dosage: 20 UG, QD
     Dates: start: 20120313
  2. FORTEO [Suspect]
     Indication: OSTEOPENIA
     Dosage: UNK
     Dates: start: 20090101, end: 20090101
  3. PREDNISONE TAB [Concomitant]

REACTIONS (4)
  - INJECTION SITE HAEMATOMA [None]
  - INJECTION SITE PAIN [None]
  - INJECTION SITE HAEMORRHAGE [None]
  - SPINAL CORD OPERATION [None]
